FAERS Safety Report 9441156 (Version 4)
Quarter: 2014Q2

REPORT INFORMATION
  Report Type: Report from Study
  Country: US (occurrence: US)
  Receive Date: 20130805
  Receipt Date: 20140414
  Transmission Date: 20141212
  Serious: Yes (Other)
  Sender: FDA-Public Use
  Company Number: US-GLAXOSMITHKLINE-Z0018836B

PATIENT
  Age: 40 Year
  Sex: Male
  Weight: 74.1 kg

DRUGS (4)
  1. TRAMETINIB [Suspect]
     Indication: MALIGNANT MELANOMA
     Dosage: 2MG PER DAY
     Route: 048
     Dates: start: 20121025
  2. DABRAFENIB [Suspect]
     Indication: MALIGNANT MELANOMA
     Dosage: 150MG TWICE PER DAY
     Route: 048
     Dates: start: 20121025
  3. LIDOCAINE WITH EPINEPHRINE [Concomitant]
     Indication: SKIN LESION
     Dosage: 1PCT SINGLE DOSE
     Route: 042
     Dates: start: 20130611, end: 20130611
  4. LIDOCAINE WITH EPINEPHRINE [Concomitant]
     Indication: BASAL CELL CARCINOMA
     Dosage: 1PCT SINGLE DOSE
     Route: 042
     Dates: start: 20130702, end: 20130702

REACTIONS (1)
  - Basal cell carcinoma [Recovered/Resolved]
